FAERS Safety Report 16837768 (Version 1)
Quarter: 2019Q3

REPORT INFORMATION
  Report Type: Spontaneous
  Country: US (occurrence: US)
  Receive Date: 20190731
  Receipt Date: 20190731
  Transmission Date: 20191005
  Serious: No
  Sender: FDA-Public Use
  Company Number: None

PATIENT
  Age: 54 Year
  Sex: Female

DRUGS (1)
  1. STELARA [Suspect]
     Active Substance: USTEKINUMAB
     Dates: start: 200202, end: 200302

REACTIONS (3)
  - Influenza like illness [None]
  - Back pain [None]
  - Malaise [None]

NARRATIVE: CASE EVENT DATE: 20190731
